FAERS Safety Report 9229343 (Version 1)
Quarter: 2013Q2

REPORT INFORMATION
  Report Type: Spontaneous
  Country: US (occurrence: US)
  Receive Date: 20130412
  Receipt Date: 20130412
  Transmission Date: 20140414
  Serious: Yes (Other)
  Sender: FDA-Public Use
  Company Number: US-ASTELLAS-2013US001250

PATIENT
  Age: 67 Year
  Sex: Female
  Weight: 119 kg

DRUGS (1)
  1. PROGRAF [Suspect]
     Indication: RENAL TRANSPLANT
     Dosage: 10 MG, BID
     Route: 048
     Dates: start: 20051001, end: 201110

REACTIONS (1)
  - Renal graft loss [Not Recovered/Not Resolved]
